FAERS Safety Report 6642448-0 (Version None)
Quarter: 2010Q1

REPORT INFORMATION
  Report Type: 
  Country: None (occurrence: None)
  Receive Date: 20100319
  Receipt Date: 20100310
  Transmission Date: 20100710
  Serious: Yes (Death, Life-Threatening)
  Sender: FDA-Public Use
  Company Number: JP-PFIZER INC-2010031929

PATIENT
  Age: 56 Year
  Sex: Female
  Weight: 67.4 kg

DRUGS (8)
  1. SUNITINIB MALATE [Suspect]
     Indication: RENAL CELL CARCINOMA
     Dosage: 50 MG, 1X/DAY
     Route: 048
     Dates: start: 20081126, end: 20081209
  2. DEPAS [Concomitant]
     Route: 048
     Dates: start: 20081021
  3. OMEPRAL [Concomitant]
     Route: 048
     Dates: start: 20081031
  4. FENTANYL [Concomitant]
     Route: 062
     Dates: start: 20081104
  5. DIFLUPREDNATE [Concomitant]
     Route: 062
     Dates: start: 20081205
  6. PEROSPIRONE HYDROCHLORIDE [Concomitant]
     Route: 048
     Dates: start: 20081201
  7. MORPHINE HYDROCHLORIDE [Concomitant]
     Route: 048
     Dates: start: 20081102
  8. PRIMPERAN INJ [Concomitant]
     Route: 048
     Dates: start: 20081025

REACTIONS (2)
  - DEATH [None]
  - THROMBOCYTOPENIA [None]
